FAERS Safety Report 9361285 (Version 1)
Quarter: 2013Q2

REPORT INFORMATION
  Report Type: Spontaneous
  Country: US (occurrence: US)
  Receive Date: 20130621
  Receipt Date: 20130621
  Transmission Date: 20140414
  Serious: No
  Sender: FDA-Public Use
  Company Number: US-BAYER-2013-075755

PATIENT
  Age: 63 Year
  Sex: Female
  Weight: 102.95 kg

DRUGS (4)
  1. BAYER EXTRA STRENGTH BACK + BODY PAIN [Suspect]
     Indication: ARTHRITIS
     Route: 048
  2. ALEVE CAPLET [Suspect]
     Route: 048
  3. BAYER ASPIRIN REGIMEN ADULT LOW STRENGTH [Suspect]
     Indication: ISCHAEMIC HEART DISEASE PROPHYLAXIS
     Route: 048
  4. DARVOCET [Concomitant]

REACTIONS (4)
  - Constipation [None]
  - Drug ineffective [None]
  - Incorrect drug administration duration [None]
  - Drug ineffective [None]
